FAERS Safety Report 7492086-5 (Version None)
Quarter: 2011Q2

REPORT INFORMATION
  Report Type: 
  Country: None (occurrence: None)
  Receive Date: 20110519
  Receipt Date: 20110505
  Transmission Date: 20111010
  Serious: Yes (Other)
  Sender: FDA-Public Use
  Company Number: DE-BAXTER-2011BH014669

PATIENT
  Age: 80 Year
  Sex: Male
  Weight: 61 kg

DRUGS (19)
  1. GAMMAGARD LIQUID [Suspect]
     Route: 042
     Dates: start: 20110310
  2. GAMMAGARD LIQUID [Suspect]
     Route: 042
     Dates: start: 20101023
  3. FINASTERIDE [Concomitant]
     Indication: PRODUCT USED FOR UNKNOWN INDICATION
     Route: 065
  4. GAMMAGARD LIQUID [Suspect]
     Indication: SELECTIVE IGG SUBCLASS DEFICIENCY
     Route: 042
     Dates: start: 20110411
  5. MIRTAZAPINE [Concomitant]
     Indication: DEPRESSION
     Route: 065
  6. GAMMAGARD LIQUID [Suspect]
     Route: 042
     Dates: start: 20110216
  7. GAMMAGARD LIQUID [Suspect]
     Route: 042
     Dates: start: 20110119
  8. AREDIA [Concomitant]
     Indication: PRODUCT USED FOR UNKNOWN INDICATION
     Route: 065
  9. METOCLOPRAMIDE [Concomitant]
     Indication: NAUSEA
     Route: 065
  10. DEXAMETHASONE [Concomitant]
     Indication: PRODUCT USED FOR UNKNOWN INDICATION
     Route: 065
  11. MOXONIDINE [Concomitant]
     Indication: HYPERTENSION
     Route: 065
  12. FUROSEMID ^DAK^ [Concomitant]
     Indication: PRODUCT USED FOR UNKNOWN INDICATION
     Route: 065
  13. ASPIRIN [Concomitant]
     Indication: PRODUCT USED FOR UNKNOWN INDICATION
     Route: 065
  14. PANTOPRAZOLE [Concomitant]
     Indication: PRODUCT USED FOR UNKNOWN INDICATION
     Route: 065
  15. ACYCLOVIR [Concomitant]
     Indication: PROPHYLAXIS
     Route: 065
  16. LAXOBERAL ^BOEHRINGER INGELHEIM^ [Concomitant]
     Indication: PRODUCT USED FOR UNKNOWN INDICATION
     Route: 065
  17. KALINOR [Concomitant]
     Indication: PRODUCT USED FOR UNKNOWN INDICATION
     Route: 065
  18. METOPROLOL SUCCINATE [Concomitant]
     Indication: CORONARY ARTERY DISEASE
     Route: 065
  19. MOVIPREP [Concomitant]
     Indication: PRODUCT USED FOR UNKNOWN INDICATION
     Route: 065

REACTIONS (4)
  - CHILLS [None]
  - OXYGEN SATURATION DECREASED [None]
  - TACHYCARDIA [None]
  - HYPOTENSION [None]
